FAERS Safety Report 4362520-8 (Version None)
Quarter: 2004Q2

REPORT INFORMATION
  Report Type: 
  Country: None (occurrence: None)
  Receive Date: 20040517
  Receipt Date: 20040304
  Transmission Date: 20050107
  Serious: Yes (Other)
  Sender: FDA-Public Use
  Company Number: S04-USA-01393-03

PATIENT

DRUGS (3)
  1. NAMENDA [Suspect]
     Dosage: UNK
     Route: 065
  2. NAMENDA [Suspect]
     Dosage: UNK
     Route: 065
  3. NAMENDA [Suspect]
     Dosage: UNK
     Route: 065

REACTIONS (1)
  - CONVULSION [None]
